FAERS Safety Report 14113665 (Version 1)
Quarter: 2017Q4

REPORT INFORMATION
  Report Type: Spontaneous
  Country: US (occurrence: None)
  Receive Date: 20171021
  Receipt Date: 20171021
  Transmission Date: 20180321
  Serious: No
  Sender: FDA-Public Use
  Company Number: None

PATIENT

DRUGS (8)
  1. DAUNORUBICIN [Suspect]
     Active Substance: DAUNORUBICIN
     Dates: end: 20130315
  2. SPIRONOLACTONE. [Concomitant]
     Active Substance: SPIRONOLACTONE
  3. ETOPOSIDE (VP-16) [Suspect]
     Active Substance: ETOPOSIDE
     Dates: end: 20130413
  4. NORETHINDRONE. [Concomitant]
     Active Substance: NORETHINDRONE
  5. ENALAPRIL [Concomitant]
     Active Substance: ENALAPRIL
  6. L-ASPARAGINASE [Concomitant]
     Active Substance: ASPARAGINASE
  7. LEVOFLOXACIN. [Concomitant]
     Active Substance: LEVOFLOXACIN
  8. CYTARABINE. [Suspect]
     Active Substance: CYTARABINE
     Dates: end: 20130523

REACTIONS (6)
  - Pulmonary oedema [None]
  - Pulseless electrical activity [None]
  - Tachycardia [None]
  - Asthenia [None]
  - Blood pressure decreased [None]
  - Dysarthria [None]

NARRATIVE: CASE EVENT DATE: 20130603
